FAERS Safety Report 19648705 (Version 1)
Quarter: 2021Q3

REPORT INFORMATION
  Report Type: Report from Study
  Country: IT (occurrence: IT)
  Receive Date: 20210803
  Receipt Date: 20210803
  Transmission Date: 20211014
  Serious: Yes (Other)
  Sender: FDA-Public Use
  Company Number: IT-TEVA-2021-IT-1937594

PATIENT
  Age: 46 Year
  Sex: Male

DRUGS (8)
  1. VALDORM 15 MG CAPSULE [Concomitant]
     Active Substance: FLURAZEPAM HYDROCHLORIDE
  2. BENERVA 300 MG COMPRESSE GASTRORESISTENTI [Concomitant]
     Active Substance: THIAMINE HYDROCHLORIDE
  3. ISOPTIN [Concomitant]
     Active Substance: VERAPAMIL HYDROCHLORIDE
  4. GABAPENTIN. [Suspect]
     Active Substance: GABAPENTIN
     Indication: AFFECTIVE DISORDER
     Dosage: 1200 MG
     Route: 048
     Dates: start: 20210112
  5. CYMBALTA [Concomitant]
     Active Substance: DULOXETINE HYDROCHLORIDE
  6. AKINETON [Concomitant]
     Active Substance: BIPERIDEN HYDROCHLORIDE
  7. TACHIPIRINA 1000 MG COMPRESSE [Concomitant]
     Active Substance: ACETAMINOPHEN
  8. CLOPIXOL 200 MG/ML SOLUZIONE INIETTABILE A RILASCIO PROLUNGATO PER USO [Concomitant]
     Active Substance: ZUCLOPENTHIXOL

REACTIONS (3)
  - Rash pruritic [Not Recovered/Not Resolved]
  - Psoriasis [Not Recovered/Not Resolved]
  - Rash [Not Recovered/Not Resolved]

NARRATIVE: CASE EVENT DATE: 20210112
